FAERS Safety Report 5143644-4 (Version None)
Quarter: 2006Q4

REPORT INFORMATION
  Report Type: 
  Country: None (occurrence: None)
  Receive Date: 20061103
  Receipt Date: 20061030
  Transmission Date: 20070319
  Serious: Yes (Other)
  Sender: FDA-Public Use
  Company Number: GB-ALLERGAN-0606972US

PATIENT
  Sex: Female

DRUGS (1)
  1. BOTOX 100 UNITS [Suspect]
     Indication: MUSCULOSKELETAL PAIN
     Dosage: UNK, SINGLE
     Route: 030
     Dates: start: 20020101

REACTIONS (3)
  - CERVICAL NEURITIS [None]
  - HEADACHE [None]
  - NECK PAIN [None]
